FAERS Safety Report 7603023-4 (Version None)
Quarter: 2011Q3

REPORT INFORMATION
  Report Type: 
  Country: None (occurrence: None)
  Receive Date: 20110712
  Receipt Date: 20110629
  Transmission Date: 20111222
  Serious: Yes (Hospitalization, Other)
  Sender: FDA-Public Use
  Company Number: US-ELI_LILLY_AND_COMPANY-US201104008006

PATIENT
  Sex: Female

DRUGS (11)
  1. FORTEO [Suspect]
     Dosage: 20 UG, QD
     Route: 065
  2. MEGESTROL ACETATE [Concomitant]
  3. ESTRACE [Concomitant]
     Indication: BLADDER SPHINCTER ATONY
  4. FORTEO [Suspect]
     Indication: OSTEOPOROSIS
     Dosage: 20 UG, QD
     Route: 065
     Dates: start: 20090601, end: 20090601
  5. FORTEO [Suspect]
     Dosage: 20 UG, QD
     Route: 065
     Dates: start: 20110321
  6. COREG [Concomitant]
     Indication: CARDIAC DISORDER
     Dosage: 1 DF, BID
  7. MICRO-K [Concomitant]
     Dosage: 1 DF, BID
  8. BENTYL [Concomitant]
     Dosage: 1 DF, TID
  9. KLONOPIN [Concomitant]
     Dosage: 2 DF, BID
  10. PREMARIN [Concomitant]
  11. LISINOPRIL [Concomitant]
     Dosage: 1 DF, BID

REACTIONS (12)
  - BACK DISORDER [None]
  - HEADACHE [None]
  - MYOCARDIAL RUPTURE [None]
  - MYOCARDIAL INFARCTION [None]
  - WEIGHT DECREASED [None]
  - DECREASED APPETITE [None]
  - LIGAMENT SPRAIN [None]
  - PAIN [None]
  - NAUSEA [None]
  - SPINAL FRACTURE [None]
  - OXYGEN SATURATION DECREASED [None]
  - FALL [None]
